FAERS Safety Report 12951716 (Version 1)
Quarter: 2016Q4

REPORT INFORMATION
  Report Type: Spontaneous
  Country: US (occurrence: US)
  Receive Date: 20161117
  Receipt Date: 20161117
  Transmission Date: 20170207
  Serious: Yes (Other)
  Sender: FDA-Public Use
  Company Number: US-ROCHE-1855233

PATIENT

DRUGS (1)
  1. VALIUM [Suspect]
     Active Substance: DIAZEPAM
     Indication: SLEEP DISORDER
     Route: 065
     Dates: start: 20160101

REACTIONS (4)
  - Treatment noncompliance [Unknown]
  - Seizure [Unknown]
  - Myoclonus [Unknown]
  - Fall [Unknown]
